FAERS Safety Report 5012430-8 (Version None)
Quarter: 2006Q2

REPORT INFORMATION
  Report Type: 
  Country: None (occurrence: None)
  Receive Date: 20060414
  Receipt Date: 20060115
  Transmission Date: 20061013
  Serious: No
  Sender: FDA-Public Use
  Company Number: 2006SP000265

PATIENT
  Sex: 0

DRUGS (1)
  1. LUNESTA [Suspect]
     Dosage: 2 MG;HS;ORAL
     Route: 048

REACTIONS (2)
  - DRUG INEFFECTIVE [None]
  - INSOMNIA [None]
